FAERS Safety Report 13682992 (Version 1)
Quarter: 2017Q2

REPORT INFORMATION
  Report Type: Spontaneous
  Country: US (occurrence: US)
  Receive Date: 20170623
  Receipt Date: 20170623
  Transmission Date: 20170830
  Serious: No
  Sender: FDA-Public Use
  Company Number: US-MALLINCKRODT-T201701870

PATIENT
  Sex: Male

DRUGS (6)
  1. TRAMADOL HCL [Concomitant]
     Active Substance: TRAMADOL HYDROCHLORIDE
     Dosage: 50 MG
     Route: 048
  2. H.P. ACTHAR [Suspect]
     Active Substance: CORTICOTROPIN
     Indication: DIABETES MELLITUS
     Dosage: 80 UNITS/1 ML, 2 TIMES WEEKLY
     Route: 058
     Dates: start: 20170224
  3. PREDNISONE. [Concomitant]
     Active Substance: PREDNISONE
     Dosage: 10 MG
     Route: 048
  4. METRIX [Concomitant]
  5. RHEUMATEC [Concomitant]
     Route: 048
  6. GLIPIZIDE. [Concomitant]
     Active Substance: GLIPIZIDE
     Dosage: 10 MG
     Route: 048

REACTIONS (2)
  - Anger [Recovering/Resolving]
  - Mood altered [Recovering/Resolving]
